FAERS Safety Report 12390905 (Version 2)
Quarter: 2016Q2

REPORT INFORMATION
  Report Type: Spontaneous
  Country: US (occurrence: US)
  Receive Date: 20160520
  Receipt Date: 20160520
  Transmission Date: 20160815
  Serious: No
  Sender: FDA-Public Use
  Company Number: US-BRISTOL-MYERS SQUIBB COMPANY-BMS-2016-039282

PATIENT
  Sex: Female

DRUGS (9)
  1. PRAZOSIN [Concomitant]
     Active Substance: PRAZOSIN
     Indication: NIGHTMARE
     Route: 065
  2. ABILIFY [Suspect]
     Active Substance: ARIPIPRAZOLE
     Indication: PRODUCT USED FOR UNKNOWN INDICATION
     Dosage: UNK
     Route: 065
  3. ZYPREXA [Concomitant]
     Active Substance: OLANZAPINE
     Indication: MANIA
     Route: 065
  4. LITHIUM. [Concomitant]
     Active Substance: LITHIUM
     Indication: PRODUCT USED FOR UNKNOWN INDICATION
     Route: 065
  5. GABAPENTIN. [Concomitant]
     Active Substance: GABAPENTIN
     Indication: BACK PAIN
     Route: 065
  6. GEODON [Suspect]
     Active Substance: ZIPRASIDONE HYDROCHLORIDE\ZIPRASIDONE MESYLATE
     Indication: PRODUCT USED FOR UNKNOWN INDICATION
     Route: 065
  7. ZONEGRAN [Concomitant]
     Active Substance: ZONISAMIDE
     Indication: PRODUCT USED FOR UNKNOWN INDICATION
     Route: 065
  8. RISPERDAL [Concomitant]
     Active Substance: RISPERIDONE
     Indication: PSYCHOTIC DISORDER
     Route: 065
  9. LAMICTAL [Concomitant]
     Active Substance: LAMOTRIGINE
     Indication: DEPRESSION
     Route: 065

REACTIONS (3)
  - Insomnia [Unknown]
  - Vomiting [Unknown]
  - Drug ineffective [Unknown]
